FAERS Safety Report 10903729 (Version 1)
Quarter: 2015Q1

REPORT INFORMATION
  Report Type: Spontaneous
  Country: US (occurrence: None)
  Receive Date: 20150304
  Receipt Date: 20150304
  Transmission Date: 20150721
  Serious: Yes (Death, Hospitalization)
  Sender: FDA-Public Use
  Company Number: None

PATIENT
  Age: 11 Year
  Sex: Male
  Weight: 34.7 kg

DRUGS (6)
  1. QUADRAMET [Suspect]
     Active Substance: SAMARIUM SM-153 LEXIDRONAM PENTASODIUM
     Indication: OSTEOSARCOMA METASTATIC
     Route: 042
     Dates: start: 20150211, end: 20150211
  2. QUADRAMET [Suspect]
     Active Substance: SAMARIUM SM-153 LEXIDRONAM PENTASODIUM
     Indication: OSTEOSARCOMA METASTATIC
     Route: 042
     Dates: start: 20150218, end: 20150218
  3. ZOFRAN [Concomitant]
     Active Substance: ONDANSETRON HYDROCHLORIDE
  4. NS [Concomitant]
     Active Substance: SODIUM CHLORIDE
  5. SAMARIUM TREATMENT [Concomitant]
  6. ALBUTEROL INHALER [Concomitant]
     Active Substance: ALBUTEROL

REACTIONS (6)
  - Tumour compression [None]
  - Acute respiratory distress syndrome [None]
  - Obstructive airways disorder [None]
  - Pulmonary mass [None]
  - Procedural haemorrhage [None]
  - Acidosis [None]

NARRATIVE: CASE EVENT DATE: 20150302
